FAERS Safety Report 8986877 (Version 1)
Quarter: 2012Q4

REPORT INFORMATION
  Report Type: Spontaneous
  Country: US (occurrence: None)
  Receive Date: 20121119
  Receipt Date: 20121119
  Transmission Date: 20130627
  Serious: No
  Sender: FDA-Public Use
  Company Number: 2012-00186

PATIENT
  Age: 62 Year
  Sex: Male

DRUGS (3)
  1. ZICAM COLD REMEDY [Suspect]
     Indication: COLD
     Dosage: 3 sprays 3 hours apart
     Dates: start: 20121112
  2. BENICAR [Concomitant]
  3. CIALIS [Concomitant]

REACTIONS (2)
  - Stomatitis [None]
  - Ageusia [None]
